FAERS Safety Report 10276295 (Version 1)
Quarter: 2014Q3

REPORT INFORMATION
  Report Type: Spontaneous
  Country: IT (occurrence: IT)
  Receive Date: 20140703
  Receipt Date: 20140703
  Transmission Date: 20150326
  Serious: Yes (Hospitalization)
  Sender: FDA-Public Use
  Company Number: PHHY2014IT080123

PATIENT
  Age: 84 Year
  Sex: Male

DRUGS (6)
  1. MICARDIS [Concomitant]
     Active Substance: TELMISARTAN
     Dosage: 40 MG,
     Route: 048
  2. SILODYX [Concomitant]
     Active Substance: SILODOSIN
     Dosage: 8 MG,
     Route: 048
  3. METOPROLOL SANDOZ [Suspect]
     Active Substance: METOPROLOL
     Indication: HYPERTENSION
     Dosage: 75 MG, QD
     Route: 048
     Dates: start: 20140601, end: 20140615
  4. ATORVASTATIN [Concomitant]
     Active Substance: ATORVASTATIN
     Indication: DYSLIPIDAEMIA
     Dosage: 40 MG,
     Route: 048
  5. CARDIOASPIRIN [Concomitant]
     Active Substance: ASPIRIN
     Dosage: 100 MG,
     Route: 048
  6. PANTOPRAZOLO [Concomitant]
     Dosage: 40 MG,
     Route: 048

REACTIONS (2)
  - Syncope [Recovered/Resolved]
  - Bradycardia [Recovered/Resolved]

NARRATIVE: CASE EVENT DATE: 20140615
